FAERS Safety Report 9537594 (Version 1)
Quarter: 2013Q3

REPORT INFORMATION
  Report Type: Spontaneous
  Country: US (occurrence: US)
  Receive Date: 20130919
  Receipt Date: 20130919
  Transmission Date: 20140515
  Serious: No
  Sender: FDA-Public Use
  Company Number: US-009507513-1309USA005173

PATIENT
  Age: 72 Year
  Sex: Female

DRUGS (1)
  1. AZASITE [Suspect]
     Dosage: 2 GTT, HS
     Route: 047

REACTIONS (2)
  - Eye pain [Recovered/Resolved]
  - Incorrect product storage [Unknown]
